FAERS Safety Report 6588446-7 (Version None)
Quarter: 2010Q1

REPORT INFORMATION
  Report Type: 
  Country: None (occurrence: None)
  Receive Date: 20100218
  Receipt Date: 20100210
  Transmission Date: 20100710
  Serious: Yes (Hospitalization)
  Sender: FDA-Public Use
  Company Number: CN-ROCHE-684779

PATIENT
  Sex: Male
  Weight: 60 kg

DRUGS (6)
  1. BLINDED BEVACIZUMAB [Suspect]
     Indication: GASTRIC CANCER
     Dosage: CYCLE 1. FREQUENCY AS PER PROTOCOL.
     Route: 042
  2. BLINDED BEVACIZUMAB [Suspect]
     Dosage: FORM: INFUSION. FREQUENCY: D1Q3W. CYCLE 3, DRUG PERMANENTLY DISCONTINUED.
     Route: 042
     Dates: start: 20100115, end: 20100209
  3. CAPECITABINE [Suspect]
     Indication: GASTRIC CANCER
     Dosage: CYCLE 1. REQUENCY AS PER PROTOCOL.
     Route: 048
  4. CAPECITABINE [Suspect]
     Dosage: FREQUENCY: D1-14Q3WEEKS. CYCLE 3. UNITS: MG1300. DRUG WAS TEMPORARILY INTURRUPTED.
     Route: 048
     Dates: start: 20100115, end: 20100124
  5. CISPLATIN [Suspect]
     Indication: GASTRIC CANCER
     Dosage: CYCLE 1. FREQUENCY AS PER PROTOCOL.
     Route: 042
  6. CISPLATIN [Suspect]
     Dosage: FORM: INFUSION.FREQUENCY: D1Q3W. UNIT: MG101.4.LAST DOSE PRIOR TO EVENT: 15 JANUARY 2010. CYCLE 3.
     Route: 042
     Dates: start: 20100115, end: 20100209

REACTIONS (1)
  - CEREBRAL ISCHAEMIA [None]
